FAERS Safety Report 20808299 (Version 2)
Quarter: 2022Q4

REPORT INFORMATION
  Report Type: Report from Study
  Country: US (occurrence: US)
  Receive Date: 20220510
  Receipt Date: 20221124
  Transmission Date: 20230112
  Serious: Yes (Hospitalization)
  Sender: FDA-Public Use
  Company Number: US-GLAXOSMITHKLINE-US2021GSK156615

PATIENT

DRUGS (10)
  1. NIRAPARIB [Suspect]
     Active Substance: NIRAPARIB
     Indication: Ovarian cancer
     Dosage: UNK
     Route: 048
  2. NIRAPARIB [Suspect]
     Active Substance: NIRAPARIB
     Dosage: 200 MG
     Route: 048
     Dates: start: 20210719
  3. CARBOPLATIN [Suspect]
     Active Substance: CARBOPLATIN
     Indication: Ovarian cancer
     Dosage: 6 AUC
     Route: 042
     Dates: start: 20200827, end: 20200827
  4. CARBOPLATIN [Suspect]
     Active Substance: CARBOPLATIN
     Dosage: 6 AUC
     Route: 042
     Dates: start: 20210211, end: 20210211
  5. PACLITAXEL [Suspect]
     Active Substance: PACLITAXEL
     Indication: Ovarian cancer
     Dosage: 420 MG
     Route: 042
     Dates: start: 20200827, end: 20200827
  6. PACLITAXEL [Suspect]
     Active Substance: PACLITAXEL
     Dosage: 330 MG
     Route: 042
  7. BEVACIZUMAB [Suspect]
     Active Substance: BEVACIZUMAB
     Indication: Ovarian cancer
     Dosage: UNK
     Route: 042
  8. DOCETAXEL [Concomitant]
     Active Substance: DOCETAXEL
     Indication: Ovarian cancer
     Dosage: UNK
  9. CISPLATIN [Concomitant]
     Active Substance: CISPLATIN
     Indication: Ovarian cancer
  10. METHOTREXATE [Concomitant]
     Active Substance: METHOTREXATE
     Indication: Arthritis
     Dosage: 10 MG, WE
     Route: 048
     Dates: start: 20210710

REACTIONS (1)
  - Chest pain [Recovered/Resolved]

NARRATIVE: CASE EVENT DATE: 20210719
